FAERS Safety Report 4322009-9 (Version None)
Quarter: 2004Q1

REPORT INFORMATION
  Report Type: 
  Country: None (occurrence: None)
  Receive Date: 20040323
  Receipt Date: 20030819
  Transmission Date: 20041129
  Serious: Yes (Hospitalization)
  Sender: FDA-Public Use
  Company Number: PHRM2003FR02205

PATIENT
  Age: 8 Year
  Sex: Female

DRUGS (1)
  1. GLEEVEC [Suspect]
     Indication: ACUTE LYMPHOCYTIC LEUKAEMIA
     Route: 048
     Dates: start: 20030601

REACTIONS (7)
  - CARDIAC FAILURE [None]
  - EJECTION FRACTION DECREASED [None]
  - HEPATOMEGALY [None]
  - SODIUM RETENTION [None]
  - TACHYCARDIA [None]
  - TACHYPNOEA [None]
  - WEIGHT INCREASED [None]
